APPROVED DRUG PRODUCT: VIMOVO
Active Ingredient: ESOMEPRAZOLE MAGNESIUM; NAPROXEN
Strength: EQ 20MG BASE;500MG **Federal Register determination that product was not discontinued or withdrawn for safety or effectiveness reasons**
Dosage Form/Route: TABLET, DELAYED RELEASE;ORAL
Application: N022511 | Product #001
Applicant: HORIZON MEDICINES LLC
Approved: Apr 30, 2010 | RLD: Yes | RS: No | Type: DISCN